FAERS Safety Report 15044388 (Version 2)
Quarter: 2018Q3

REPORT INFORMATION
  Report Type: Report from Study
  Country: FR (occurrence: FR)
  Receive Date: 20180621
  Receipt Date: 20180816
  Transmission Date: 20181010
  Serious: Yes (Hospitalization)
  Sender: FDA-Public Use
  Company Number: FR-SHIRE-FR201822044

PATIENT

DRUGS (11)
  1. VINCRISTINE [Suspect]
     Active Substance: VINCRISTINE
     Indication: ACUTE LYMPHOCYTIC LEUKAEMIA
     Dosage: 1 MG, 1X/DAY:QD
     Route: 042
     Dates: start: 20170830
  2. METHOTREXATE. [Suspect]
     Active Substance: METHOTREXATE
     Indication: ACUTE LYMPHOCYTIC LEUKAEMIA
     Dosage: 12 MG, 1X/DAY:QD
     Route: 037
     Dates: start: 20170913
  3. GABAPENTINE [Concomitant]
     Active Substance: GABAPENTIN
     Indication: NEURALGIA
  4. MERCAPTOPURINE. [Suspect]
     Active Substance: MERCAPTOPURINE
     Dosage: 50 MG, UNK (FOR 5 DAYS IN WEEK)
     Route: 048
     Dates: start: 20170830
  5. AMPHOTERICINE B [Concomitant]
     Active Substance: AMPHOTERICIN B
     Indication: ANTIFUNGAL PROPHYLAXIS
  6. METHOTREXATE. [Suspect]
     Active Substance: METHOTREXATE
     Dosage: 25 MG, UNK
     Route: 048
     Dates: start: 20170830
  7. DEXAMETHASONE. [Suspect]
     Active Substance: DEXAMETHASONE
     Indication: ACUTE LYMPHOCYTIC LEUKAEMIA
     Dosage: 4 MG, UNK
     Route: 048
     Dates: start: 20170830
  8. SULFAMETHOXAZOLE [Concomitant]
     Active Substance: SULFAMETHOXAZOLE
     Indication: ANTIBIOTIC PROPHYLAXIS
  9. TRIMETHOPRIM. [Concomitant]
     Active Substance: TRIMETHOPRIM
     Indication: ANTIBIOTIC PROPHYLAXIS
  10. PEGASPARGASE [Suspect]
     Active Substance: PEGASPARGASE
     Indication: ACUTE LYMPHOCYTIC LEUKAEMIA
     Dosage: 775 IU, 1X/DAY:QD
     Route: 042
     Dates: start: 20170228, end: 20170228
  11. MERCAPTOPURINE. [Suspect]
     Active Substance: MERCAPTOPURINE
     Indication: ACUTE LYMPHOCYTIC LEUKAEMIA
     Dosage: 75 MG, UNK (FOR 2 DAYS IN WEEK)
     Route: 048
     Dates: start: 20170830

REACTIONS (2)
  - Diarrhoea [Recovered/Resolved]
  - Rectal prolapse [Recovered/Resolved]

NARRATIVE: CASE EVENT DATE: 20171229
